FAERS Safety Report 21284446 (Version 1)
Quarter: 2022Q3

REPORT INFORMATION
  Report Type: Spontaneous
  Country: US (occurrence: US)
  Receive Date: 20220902
  Receipt Date: 20220902
  Transmission Date: 20221027
  Serious: No
  Sender: FDA-Public Use
  Company Number: US-TOLMAR, INC.-22US036274

PATIENT
  Sex: Male

DRUGS (1)
  1. KETOCONAZOLE [Suspect]
     Active Substance: KETOCONAZOLE
     Indication: Alopecia
     Dosage: UNK UNK, 2/WEEK
     Route: 003

REACTIONS (3)
  - Hypotension [Recovered/Resolved]
  - Tachycardia [Recovered/Resolved]
  - Feeling abnormal [Recovered/Resolved]
